FAERS Safety Report 7421928 (Version 2)
Quarter: 2014Q4

REPORT INFORMATION
  Report Type: Spontaneous
  Country: US (occurrence: US)
  Receive Date: 20100616
  Receipt Date: 20141230
  Transmission Date: 20150529
  Serious: No
  Sender: FDA-Public Use
  Company Number: US-ASTRAZENECA-2009UW07178

PATIENT
  Age: 75 Year
  Sex: Female
  Weight: 72.6 kg

DRUGS (7)
  1. PULMICORT FLEXHALER [Suspect]
     Active Substance: BUDESONIDE
     Dosage: DIFFERENT FREQUENCY AND DIFFERENT DOSING
     Route: 055
     Dates: start: 2009
  2. SYMBICORT [Suspect]
     Active Substance: BUDESONIDE\FORMOTEROL FUMARATE DIHYDRATE
     Indication: ASTHMA
     Route: 055
  3. LUMIGAN [Concomitant]
     Active Substance: BIMATOPROST
     Indication: GLAUCOMA
  4. ALPHAGAN P [Concomitant]
     Active Substance: BRIMONIDINE TARTRATE
     Indication: GLAUCOMA
  5. PROCARDIA XL [Concomitant]
     Active Substance: NIFEDIPINE
     Indication: HYPERTENSION
  6. VITAMINS [Concomitant]
     Active Substance: VITAMINS
  7. PULMICORT FLEXHALER [Suspect]
     Active Substance: BUDESONIDE
     Route: 055
     Dates: start: 2009

REACTIONS (4)
  - Circumstance or information capable of leading to medication error [Unknown]
  - Blood glucose increased [Unknown]
  - Weight increased [Unknown]
  - Accidental exposure to product [Unknown]

NARRATIVE: CASE EVENT DATE: 2009
